FAERS Safety Report 8303885-1 (Version None)
Quarter: 2012Q2

REPORT INFORMATION
  Report Type: 
  Country: None (occurrence: None)
  Receive Date: 20120423
  Receipt Date: 20120417
  Transmission Date: 20120825
  Serious: Yes (Other)
  Sender: FDA-Public Use
  Company Number: PHHY2012FR033713

PATIENT
  Sex: Female

DRUGS (3)
  1. XELODA [Suspect]
     Indication: BREAST CANCER
     Dosage: UNK UKN, UNK
     Dates: start: 20100420, end: 20101001
  2. ZOMETA [Suspect]
     Indication: BREAST CANCER
     Dosage: UNK UKN, UNK
     Route: 042
     Dates: start: 20100415, end: 20101001
  3. FEMARA [Suspect]
     Dosage: 2.5 MG, QD
     Route: 048
     Dates: start: 20100401

REACTIONS (2)
  - OSTEONECROSIS OF JAW [None]
  - BREATH ODOUR [None]
